FAERS Safety Report 5631463-1 (Version None)
Quarter: 2008Q1

REPORT INFORMATION
  Report Type: 
  Country: None (occurrence: None)
  Receive Date: 20080215
  Receipt Date: 20080111
  Transmission Date: 20080703
  Serious: Yes (Disabling, Other)
  Sender: FDA-Public Use
  Company Number: 2007S1009258

PATIENT
  Age: 46 Year
  Sex: Female
  Weight: 74.8435 kg

DRUGS (6)
  1. AMNESTEEM [Suspect]
     Indication: ACNE
     Dosage: 70 MG;DAILY;ORAL
     Route: 048
     Dates: start: 20070816, end: 20070905
  2. ACCUTANE [Concomitant]
  3. EFFEXOR [Concomitant]
  4. FLONASE [Concomitant]
  5. DIFFERIN [Concomitant]
  6. DURA [Concomitant]

REACTIONS (1)
  - ERYTHEMA NODOSUM [None]
